FAERS Safety Report 16813401 (Version 4)
Quarter: 2019Q4

REPORT INFORMATION
  Report Type: Report from Study
  Country: None (occurrence: AR)
  Receive Date: 20190917
  Receipt Date: 20191104
  Transmission Date: 20200122
  Serious: Yes (Life-Threatening, Hospitalization, Other)
  Sender: FDA-Public Use
  Company Number: AR-ABBVIE-19K-007-2909858-00

PATIENT
  Age: 39 Year
  Sex: Male

DRUGS (1)
  1. HUMIRA [Suspect]
     Active Substance: ADALIMUMAB
     Indication: HIDRADENITIS
     Route: 058
     Dates: start: 20170615, end: 201812

REACTIONS (8)
  - Infection [Recovering/Resolving]
  - Arthritis viral [Recovering/Resolving]
  - Postoperative wound complication [Recovering/Resolving]
  - Localised infection [Unknown]
  - Anal haemorrhage [Not Recovered/Not Resolved]
  - Hidradenitis [Not Recovered/Not Resolved]
  - Testicular haemorrhage [Not Recovered/Not Resolved]
  - Viraemia [Recovering/Resolving]

NARRATIVE: CASE EVENT DATE: 2019
